FAERS Safety Report 15798422 (Version 1)
Quarter: 2019Q1

REPORT INFORMATION
  Report Type: Spontaneous
  Country: BE (occurrence: BE)
  Receive Date: 20190108
  Receipt Date: 20190108
  Transmission Date: 20190417
  Serious: Yes (Other)
  Sender: FDA-Public Use
  Company Number: BE-ASTRAZENECA-2019SE01374

PATIENT
  Age: 12 Year
  Sex: Female

DRUGS (1)
  1. OMEPRAZOLE. [Suspect]
     Active Substance: OMEPRAZOLE
     Indication: GASTRITIS
     Route: 048

REACTIONS (4)
  - Psychotic symptom [Recovered/Resolved]
  - Delusion [Recovered/Resolved]
  - Off label use [Unknown]
  - Thinking abnormal [Recovered/Resolved]
